FAERS Safety Report 5697812-3 (Version None)
Quarter: 2008Q2

REPORT INFORMATION
  Report Type: 
  Country: None (occurrence: None)
  Receive Date: 20080408
  Receipt Date: 20080402
  Transmission Date: 20081010
  Serious: Yes (Hospitalization)
  Sender: FDA-Public Use
  Company Number: JP-BRISTOL-MYERS SQUIBB COMPANY-14140701

PATIENT
  Age: 57 Year
  Sex: Male

DRUGS (15)
  1. TAXOL [Suspect]
     Indication: LUNG NEOPLASM MALIGNANT
     Route: 041
     Dates: start: 20080201, end: 20080313
  2. PARAPLATIN [Suspect]
     Indication: LUNG NEOPLASM MALIGNANT
     Route: 041
     Dates: start: 20080201, end: 20080313
  3. AVASTIN [Suspect]
     Indication: LUNG NEOPLASM MALIGNANT
     Route: 042
     Dates: start: 20080201, end: 20080313
  4. RESTAMIN [Concomitant]
     Dosage: ALSO 21FEB08 TO 13MAR08
     Route: 062
     Dates: start: 20080226
  5. RINDERON-VG [Concomitant]
     Route: 062
     Dates: start: 20080227
  6. ISODINE [Concomitant]
     Route: 049
     Dates: start: 20080308
  7. TAKEPRON [Concomitant]
     Dosage: 24FEB08-26FEB08, + 17MAR08-17MAR08, 18MAR08 TO 23MAR08.
     Route: 048
     Dates: start: 20080318, end: 20080323
  8. GLUCOSE [Concomitant]
     Route: 042
     Dates: start: 20080221, end: 20080313
  9. KYTRIL [Concomitant]
     Route: 042
     Dates: start: 20080221, end: 20080313
  10. ZANTAC [Concomitant]
     Route: 042
     Dates: start: 20080221, end: 20080313
  11. DECADRON [Concomitant]
     Dosage: 21FEB08, 12MAR08-13MAR08,INTRAVEONOUS.
     Route: 042
     Dates: start: 20080221, end: 20080313
  12. CHLORPROMAZINE HCL [Concomitant]
     Route: 048
     Dates: start: 20080314, end: 20080314
  13. HEPARIN SODIUM [Concomitant]
     Dosage: 12MAR08 AND 13MAR08, INTRAVENOUS
     Route: 042
     Dates: start: 20080312, end: 20080313
  14. VOLTAREN [Concomitant]
     Route: 054
     Dates: start: 20080316, end: 20080316
  15. LOXONIN [Concomitant]
     Dosage: 23FEB08, 24FEB08 AND 25-FEB-08 TO 16-MAR-08.
     Route: 048
     Dates: start: 20080223, end: 20080316

REACTIONS (2)
  - DIZZINESS [None]
  - VOMITING [None]
